FAERS Safety Report 25575262 (Version 1)
Quarter: 2025Q3

REPORT INFORMATION
  Report Type: Spontaneous
  Country: CA (occurrence: CA)
  Receive Date: 20250718
  Receipt Date: 20250718
  Transmission Date: 20251021
  Serious: Yes (Other)
  Sender: ORGANON
  Company Number: CA-ORGANON-O2507CAN001228

PATIENT
  Age: 6 Year
  Sex: Male

DRUGS (3)
  1. SINGULAIR [Suspect]
     Active Substance: MONTELUKAST SODIUM
     Indication: Asthma
     Dosage: 5 MILLIGRAM, QD (1 EVERY 1 DAYS)
     Route: 048
  2. FLUTICASONE [Concomitant]
     Active Substance: FLUTICASONE
     Route: 065
  3. VENTOLIN [Concomitant]
     Active Substance: ALBUTEROL SULFATE

REACTIONS (11)
  - Abdominal pain [Unknown]
  - Aggression [Unknown]
  - Cough [Unknown]
  - Decreased appetite [Unknown]
  - Depressed mood [Unknown]
  - Fatigue [Unknown]
  - Frustration tolerance decreased [Unknown]
  - Irritability [Unknown]
  - Neuropsychological symptoms [Unknown]
  - Nightmare [Unknown]
  - Pyrexia [Unknown]
